FAERS Safety Report 21814343 (Version 2)
Quarter: 2023Q1

REPORT INFORMATION
  Report Type: Report from Study
  Country: US (occurrence: US)
  Receive Date: 20230104
  Receipt Date: 20230105
  Transmission Date: 20230418
  Serious: Yes (Hospitalization)
  Sender: FDA-Public Use
  Company Number: US-GLAXOSMITHKLINE-US2022GSK190852

PATIENT
  Age: 68 Year
  Sex: Male

DRUGS (2)
  1. PANITUMUMAB [Suspect]
     Active Substance: PANITUMUMAB
     Indication: Colorectal cancer
     Dosage: UNK
     Route: 040
     Dates: start: 20220707, end: 20221217
  2. NIRAPARIB [Suspect]
     Active Substance: NIRAPARIB
     Indication: Colorectal cancer
     Dosage: UNK
     Route: 048
     Dates: start: 20220707, end: 20221217

REACTIONS (1)
  - Colitis [Unknown]

NARRATIVE: CASE EVENT DATE: 20221217
